FAERS Safety Report 24062305 (Version 1)
Quarter: 2024Q3

REPORT INFORMATION
  Report Type: Spontaneous
  Country: CA (occurrence: CA)
  Receive Date: 20240708
  Receipt Date: 20240708
  Transmission Date: 20241016
  Serious: Yes (Life-Threatening, Hospitalization, Other)
  Sender: TEVA
  Company Number: CA-TEVA-VS-3218174

PATIENT
  Age: 15 Year
  Sex: Female
  Weight: 54 kg

DRUGS (14)
  1. LORAZEPAM [Suspect]
     Active Substance: LORAZEPAM
     Indication: Intentional overdose
     Route: 065
  2. CANDESARTAN [Suspect]
     Active Substance: CANDESARTAN
     Indication: Intentional overdose
     Route: 065
  3. NITRIC OXIDE [Concomitant]
     Active Substance: NITRIC OXIDE
     Indication: Acute respiratory distress syndrome
     Route: 055
  4. AMLODIPINE BESYLATE [Suspect]
     Active Substance: AMLODIPINE BESYLATE
     Indication: Intentional overdose
     Route: 065
  5. DEXTROSE [Concomitant]
     Active Substance: DEXTROSE\DEXTROSE MONOHYDRATE
     Indication: Supplementation therapy
     Route: 065
  6. EPINEPHRINE [Concomitant]
     Active Substance: EPINEPHRINE
     Indication: Hypotension
     Route: 050
  7. FLUOXETINE HYDROCHLORIDE [Suspect]
     Active Substance: FLUOXETINE HYDROCHLORIDE
     Indication: Intentional overdose
     Route: 065
  8. HYDROCHLOROTHIAZIDE [Suspect]
     Active Substance: HYDROCHLOROTHIAZIDE
     Indication: Intentional overdose
     Route: 065
  9. INSULIN HUMAN [Concomitant]
     Active Substance: INSULIN HUMAN
     Indication: Drug toxicity prophylaxis
     Route: 065
  10. LANSOPRAZOLE [Suspect]
     Active Substance: LANSOPRAZOLE
     Indication: Intentional overdose
     Route: 065
  11. MIRTAZAPINE [Suspect]
     Active Substance: MIRTAZAPINE
     Indication: Intentional overdose
     Route: 065
  12. VASOPRESSIN [Concomitant]
     Active Substance: VASOPRESSIN
     Indication: Hypotension
     Route: 050
  13. NOREPINEPHRINE [Concomitant]
     Active Substance: NOREPINEPHRINE\NOREPINEPHRINE BITARTRATE
     Indication: Hypotension
     Route: 050
  14. REMERON [Suspect]
     Active Substance: MIRTAZAPINE
     Indication: Product used for unknown indication
     Route: 065

REACTIONS (15)
  - Acute respiratory distress syndrome [Recovered/Resolved]
  - Toxicity to various agents [Recovered/Resolved]
  - Vitamin B1 decreased [Recovered/Resolved]
  - Vitamin B1 increased [Recovered/Resolved]
  - Intentional overdose [Recovered/Resolved]
  - Lactic acidosis [Recovered/Resolved]
  - Tachycardia [Recovered/Resolved]
  - Blood lactic acid decreased [Recovered/Resolved]
  - Cardiac output increased [Recovered/Resolved]
  - Electrocardiogram abnormal [Recovered/Resolved]
  - Heart rate increased [Recovered/Resolved]
  - Hyperlactacidaemia [Recovered/Resolved]
  - Hypophagia [Recovered/Resolved]
  - Hypotension [Recovered/Resolved]
  - Hypoxia [Recovered/Resolved]
